FAERS Safety Report 10555705 (Version 2)
Quarter: 2014Q4

REPORT INFORMATION
  Report Type: Spontaneous
  Country: US (occurrence: US)
  Receive Date: 20141030
  Receipt Date: 20141030
  Transmission Date: 20150529
  Serious: No
  Sender: FDA-Public Use
  Company Number: US-ABBVIE-13P-163-1161120-00

PATIENT
  Age: 62 Year
  Sex: Female
  Weight: 99.88 kg

DRUGS (3)
  1. CLARITHROMYCIN. [Suspect]
     Active Substance: CLARITHROMYCIN
     Indication: NASOPHARYNGITIS
     Dates: start: 201301, end: 201301
  2. LIPITOR [Suspect]
     Active Substance: ATORVASTATIN CALCIUM
     Indication: PRODUCT USED FOR UNKNOWN INDICATION
  3. BIAXIN [Suspect]
     Active Substance: CLARITHROMYCIN
     Indication: NASOPHARYNGITIS

REACTIONS (6)
  - Musculoskeletal pain [Recovered/Resolved]
  - Heart rate increased [Unknown]
  - Palpitations [Unknown]
  - Pain [Unknown]
  - Epistaxis [Recovered/Resolved]
  - Haemorrhage [Unknown]

NARRATIVE: CASE EVENT DATE: 201301
